FAERS Safety Report 8611314-3 (Version None)
Quarter: 2012Q3

REPORT INFORMATION
  Report Type: 
  Country: None (occurrence: None)
  Receive Date: 20120822
  Receipt Date: 20120810
  Transmission Date: 20120928
  Serious: Yes (Hospitalization, Disabling)
  Sender: FDA-Public Use
  Company Number: JP-PFIZER INC-2011240182

PATIENT
  Age: 71 Year
  Sex: Female
  Weight: 56 kg

DRUGS (13)
  1. LEVOLEUCOVORIN CALCIUM [Concomitant]
     Indication: COLORECTAL CANCER
     Dosage: 284 MG/BODY (200 MG/M2)
     Route: 041
     Dates: start: 20110105, end: 20110523
  2. FLUOROURACIL [Concomitant]
     Indication: COLORECTAL CANCER
     Dosage: 568 MG/BODY (400 MG/M2)
     Route: 040
     Dates: start: 20110105, end: 20110523
  3. FLUOROURACIL [Concomitant]
     Dosage: 3408 MG/BODY/D1-2 (2400 MG/M2/D1-2)
     Route: 041
     Dates: start: 20110105, end: 20110202
  4. BANAN [Concomitant]
     Dosage: UNK
     Dates: start: 20110222, end: 20110225
  5. WYSTAL [Concomitant]
     Dosage: UNK
     Dates: start: 20110216, end: 20110221
  6. IRINOTECAN HYDROCHLORIDE [Suspect]
     Dosage: 150 MG, 1X/DAY
     Route: 041
     Dates: start: 20110523, end: 20110523
  7. FLUOROURACIL [Concomitant]
     Dosage: 500 MG/BODY (352.1 MG/M2)
     Route: 040
     Dates: start: 20110523
  8. AVASTIN [Concomitant]
     Indication: COLORECTAL CANCER
     Dosage: 5 MG/KG, UNK
     Route: 041
     Dates: start: 20110105, end: 20110105
  9. IRINOTECAN HYDROCHLORIDE [Suspect]
     Indication: COLORECTAL CANCER
     Dosage: 213 MG, 1X/DAY
     Route: 041
     Dates: start: 20110105, end: 20110105
  10. IRINOTECAN HYDROCHLORIDE [Suspect]
     Dosage: 213 MG, 1X/DAY
     Route: 041
     Dates: start: 20110202, end: 20110202
  11. LEVOLEUCOVORIN CALCIUM [Concomitant]
     Dosage: 275 MG/BODY (193.7 MG/M2)
     Route: 041
     Dates: start: 20110523
  12. FLUOROURACIL [Concomitant]
     Dosage: 3000 MG/BODY/D1-2 (2112.7 MG/M2/D1-2)
     Route: 041
     Dates: start: 20110523
  13. LOPERAMIDE HYDROCHLORIDE [Concomitant]
     Dosage: UNK
     Route: 048
     Dates: start: 20110208, end: 20110218

REACTIONS (3)
  - ILEUS PARALYTIC [None]
  - URINARY TRACT INFECTION [None]
  - DIARRHOEA [None]
